FAERS Safety Report 4906104-9 (Version None)
Quarter: 2006Q1

REPORT INFORMATION
  Report Type: 
  Country: None (occurrence: None)
  Receive Date: 20060209
  Receipt Date: 20060130
  Transmission Date: 20060701
  Serious: Yes (Other)
  Sender: FDA-Public Use
  Company Number: PHMT2006CA00608

PATIENT
  Age: 66 Year
  Sex: Male

DRUGS (1)
  1. GENTEAL (NVO) [Suspect]
     Indication: KERATITIS
     Dosage: 1 DRP/DAY
     Dates: start: 20060126, end: 20060126

REACTIONS (2)
  - CORNEAL ABRASION [None]
  - EYE PAIN [None]
